FAERS Safety Report 21323372 (Version 1)
Quarter: 2022Q3

REPORT INFORMATION
  Report Type: Spontaneous
  Country: US (occurrence: None)
  Receive Date: 20220910
  Receipt Date: 20220910
  Transmission Date: 20221027
  Serious: No
  Sender: FDA-Public Use
  Company Number: None

PATIENT
  Age: 34 Year
  Sex: Female
  Weight: 97.2 kg

DRUGS (33)
  1. HYDROMORPHONE HYDROCHLORIDE [Suspect]
     Active Substance: HYDROMORPHONE HYDROCHLORIDE
     Indication: Pain
     Dosage: OTHER QUANTITY : 1 TABLET(S);?OTHER FREQUENCY : 4 TO 6 HOURS PRN;?
     Route: 048
     Dates: start: 20200915
  2. HYDROXYZINE [Concomitant]
     Active Substance: HYDROXYZINE HYDROCHLORIDE
  3. CYCLOBENZAPRINE [Concomitant]
     Active Substance: CYCLOBENZAPRINE
  4. CLONAZEPAM [Concomitant]
     Active Substance: CLONAZEPAM
  5. HYDROCORTISONE [Concomitant]
     Active Substance: HYDROCORTISONE
  6. METHYLPREDNISOLONE [Concomitant]
     Active Substance: METHYLPREDNISOLONE
  7. AMETHYST [Concomitant]
     Active Substance: ETHINYL ESTRADIOL\LEVONORGESTREL
  8. NOVOLIN 70/30 [Concomitant]
     Active Substance: INSULIN HUMAN
  9. GAMUNEX-C [Concomitant]
     Active Substance: HUMAN IMMUNOGLOBULIN G
  10. DEXTROSE, UNSPECIFIED FORM [Concomitant]
     Active Substance: DEXTROSE, UNSPECIFIED FORM
  11. SODIUM CHLORIDE [Concomitant]
     Active Substance: SODIUM CHLORIDE
  12. SALINE 1L [Concomitant]
  13. HEPARIN LOCK FLUSHES [Concomitant]
  14. SIGMA SPECTRUM IV PUMP [Concomitant]
  15. BAXTER IV TUBING [Concomitant]
  16. KAWASUMI HUBER NEEDLES [Concomitant]
  17. WOLF-PAC NEEDLESS VALVES [Concomitant]
  18. WOLF-PAC STERILE DRESSING KITS [Concomitant]
  19. BARD POWER PORT [Concomitant]
  20. GVOKE HYPOPEM AUTO INJECTOR [Concomitant]
  21. BAQSIMI [Concomitant]
     Active Substance: GLUCAGON
  22. HYDROXYCHLOROQUINE [Concomitant]
     Active Substance: HYDROXYCHLOROQUINE
  23. EPINEPHRINE AUTO INJECTORS [Concomitant]
  24. METROPROLOL [Concomitant]
  25. LIDOCAINE/PRILOCAINE CREAM 2.5%/2.5% [Concomitant]
  26. APEX AUTO XT CPAP [Concomitant]
  27. RESMED SWIFT FX NANO [Concomitant]
  28. CPAP TUBING [Concomitant]
  29. PORTABLE OXYGEN CONCENTRATOR [Concomitant]
  30. MYLANTA MAXIMUM STRENGTH [Concomitant]
     Active Substance: ALUMINUM HYDROXIDE\DIMETHICONE\MAGNESIUM HYDROXIDE
  31. ORAGEL MEDICATED [Concomitant]
  32. MELATONIN [Concomitant]
     Active Substance: MELATONIN
  33. ALPHA LIPOIC ACID [Concomitant]
     Active Substance: .ALPHA.-LIPOIC ACID

REACTIONS (3)
  - Blood glucose decreased [None]
  - Product quality issue [None]
  - Product quality issue [None]

NARRATIVE: CASE EVENT DATE: 20220517
